FAERS Safety Report 15275246 (Version 2)
Quarter: 2018Q3

REPORT INFORMATION
  Report Type: Report from Study
  Country: None (occurrence: GB)
  Receive Date: 20180814
  Receipt Date: 20180817
  Transmission Date: 20181010
  Serious: Yes (Hospitalization)
  Sender: FDA-Public Use
  Company Number: GB-ABBVIE-18K-167-2448530-00

PATIENT
  Age: 36 Year
  Sex: Female

DRUGS (1)
  1. HUMIRA [Suspect]
     Active Substance: ADALIMUMAB
     Indication: HIDRADENITIS
     Dosage: 1ST LOADING DOSE
     Route: 058
     Dates: start: 20180801, end: 20180801

REACTIONS (12)
  - Hyperhidrosis [Recovered/Resolved]
  - Joint instability [Unknown]
  - Oral herpes [Recovered/Resolved]
  - Aphasia [Unknown]
  - Swelling face [Recovering/Resolving]
  - Lip blister [Unknown]
  - Asthenia [Unknown]
  - Hypoacusis [Recovered/Resolved]
  - Speech disorder [Unknown]
  - Fatigue [Unknown]
  - Hyperhidrosis [Unknown]
  - Fall [Unknown]

NARRATIVE: CASE EVENT DATE: 20180802
